FAERS Safety Report 8949916 (Version 6)
Quarter: 2013Q1

REPORT INFORMATION
  Report Type: Report from Study
  Country: GB (occurrence: GB)
  Receive Date: 20121205
  Receipt Date: 20130206
  Transmission Date: 20140127
  Serious: Yes (Hospitalization, Other)
  Sender: FDA-Public Use
  Company Number: GB-ROCHE-1152434

PATIENT
  Age: 67 Year
  Sex: Male
  Weight: 66.5 kg

DRUGS (8)
  1. VEMURAFENIB [Suspect]
     Indication: MALIGNANT MELANOMA
     Dosage: DATE OF LAST DOSE PRIOR TO SAE: 14 NOV 2012
     Route: 048
     Dates: start: 20111202
  2. VEMURAFENIB [Suspect]
     Route: 048
     Dates: start: 20111229
  3. VEMURAFENIB [Suspect]
     Route: 048
     Dates: start: 20111230, end: 20121101
  4. VEMURAFENIB [Suspect]
     Dosage: LAST DOSE PRIOR TO EVENT: 14 NOV 2012
     Route: 048
     Dates: start: 20121108
  5. IBUPROFEN [Concomitant]
     Route: 065
     Dates: start: 20120123
  6. CO-CODAMOL [Concomitant]
     Dosage: 30/500 MG
     Route: 065
     Dates: start: 20120223
  7. SERTRALINE [Concomitant]
     Route: 065
     Dates: start: 20120511
  8. GLYCERYL TRINITRATE [Concomitant]
     Route: 065
     Dates: start: 20121101

REACTIONS (2)
  - Pericardial effusion [Recovered/Resolved]
  - Atrial fibrillation [Recovered/Resolved]
